FAERS Safety Report 6432488-9 (Version None)
Quarter: 2009Q4

REPORT INFORMATION
  Report Type: 
  Country: None (occurrence: None)
  Receive Date: 20091109
  Receipt Date: 20091030
  Transmission Date: 20100525
  Serious: Yes (Other)
  Sender: FDA-Public Use
  Company Number: US-BAYER-200936770NA

PATIENT
  Age: 67 Year
  Sex: Male
  Weight: 66 kg

DRUGS (4)
  1. SORAFENIB [Suspect]
     Indication: NON-SMALL CELL LUNG CANCER STAGE IV
     Dosage: TOTAL DAILY DOSE: 800 MG  UNIT DOSE: 200 MG
     Route: 048
     Dates: start: 20060721, end: 20060907
  2. COUMADIN [Concomitant]
     Indication: PULMONARY EMBOLISM
  3. COMBIVENT [Concomitant]
  4. ANTIBIOTIC [Concomitant]
     Indication: COUGH

REACTIONS (1)
  - HEARING IMPAIRED [None]
